FAERS Safety Report 25492138 (Version 1)
Quarter: 2025Q2

REPORT INFORMATION
  Report Type: Spontaneous
  Country: CN (occurrence: CN)
  Receive Date: 20250630
  Receipt Date: 20250630
  Transmission Date: 20250716
  Serious: Yes (Life-Threatening)
  Sender: ACCORD
  Company Number: CN-MLMSERVICE-20250611-PI540312-00165-1

PATIENT
  Age: 33 Year
  Sex: Male
  Weight: 54 kg

DRUGS (11)
  1. GEMCITABINE [Suspect]
     Active Substance: GEMCITABINE
     Indication: Pancreatic carcinoma metastatic
     Dosage: INTRAVENOUS GEMCITABINE AT 1 G/M2 ON D 1 AND 8 OF A 21-DAY CYCLE
  2. PACLITAXEL [Suspect]
     Active Substance: PACLITAXEL
     Indication: Pancreatic carcinoma metastatic
     Dosage: NAB-PACLITAXEL AT 125 MG/M2 ON DAY 1 AND 8 OF A 21-DAY CYCLE
  3. RIVAROXABAN [Concomitant]
     Active Substance: RIVAROXABAN
     Indication: Pulmonary embolism
  4. GEMCITABINE [Suspect]
     Active Substance: GEMCITABINE
     Indication: Metastases to bone
     Dosage: INTRAVENOUS GEMCITABINE AT 1 G/M2 ON D 1 AND 8 OF A 21-DAY CYCLE
  5. GEMCITABINE [Suspect]
     Active Substance: GEMCITABINE
     Indication: Metastases to lymph nodes
     Dosage: INTRAVENOUS GEMCITABINE AT 1 G/M2 ON D 1 AND 8 OF A 21-DAY CYCLE
  6. GEMCITABINE [Suspect]
     Active Substance: GEMCITABINE
     Indication: Metastases to muscle
     Dosage: INTRAVENOUS GEMCITABINE AT 1 G/M2 ON D 1 AND 8 OF A 21-DAY CYCLE
  7. PACLITAXEL [Suspect]
     Active Substance: PACLITAXEL
     Indication: Metastases to liver
     Dosage: NAB-PACLITAXEL AT 125 MG/M2 ON DAY 1 AND 8 OF A 21-DAY CYCLE
  8. PACLITAXEL [Suspect]
     Active Substance: PACLITAXEL
     Indication: Metastases to bone
     Dosage: NAB-PACLITAXEL AT 125 MG/M2 ON DAY 1 AND 8 OF A 21-DAY CYCLE
  9. PACLITAXEL [Suspect]
     Active Substance: PACLITAXEL
     Indication: Metastases to lymph nodes
     Dosage: NAB-PACLITAXEL AT 125 MG/M2 ON DAY 1 AND 8 OF A 21-DAY CYCLE
  10. PACLITAXEL [Suspect]
     Active Substance: PACLITAXEL
     Indication: Metastases to muscle
     Dosage: NAB-PACLITAXEL AT 125 MG/M2 ON DAY 1 AND 8 OF A 21-DAY CYCLE
  11. GEMCITABINE [Suspect]
     Active Substance: GEMCITABINE
     Indication: Metastases to liver
     Dosage: INTRAVENOUS GEMCITABINE AT 1 G/M2 ON D 1 AND 8 OF A 21-DAY CYCLE

REACTIONS (1)
  - Leukopenia [Recovered/Resolved]
